FAERS Safety Report 4849350-5 (Version None)
Quarter: 2005Q4

REPORT INFORMATION
  Report Type: 
  Country: None (occurrence: None)
  Receive Date: 20051207
  Receipt Date: 20051129
  Transmission Date: 20060501
  Serious: Yes (Other)
  Sender: FDA-Public Use
  Company Number: 2005162274

PATIENT
  Age: 61 Year
  Sex: Female
  Weight: 58.9676 kg

DRUGS (2)
  1. ZOLOFT [Suspect]
     Indication: ANXIETY
     Dosage: 50 MG (50 MG, 1 IN 1 D)
     Dates: end: 20051101
  2. ZOLOFT [Suspect]
     Indication: HUNTINGTON'S CHOREA
     Dosage: 50 MG (50 MG, 1 IN 1 D)
     Dates: end: 20051101

REACTIONS (5)
  - CONDITION AGGRAVATED [None]
  - DRUG INEFFECTIVE [None]
  - FALL [None]
  - HUNTINGTON'S CHOREA [None]
  - SURGICAL STAPLING [None]
